FAERS Safety Report 5956185-9 (Version None)
Quarter: 2008Q4

REPORT INFORMATION
  Report Type: 
  Country: None (occurrence: None)
  Receive Date: 20081118
  Receipt Date: 20081112
  Transmission Date: 20090506
  Serious: Yes (Hospitalization)
  Sender: FDA-Public Use
  Company Number: US-JNJFOC-20081103314

PATIENT
  Sex: Female
  Weight: 45.6 kg

DRUGS (2)
  1. REMICADE [Suspect]
     Route: 042
  2. REMICADE [Suspect]
     Indication: INFLAMMATION
     Route: 042

REACTIONS (1)
  - BARTHOLIN'S CYST [None]
